FAERS Safety Report 5056879-6 (Version None)
Quarter: 2006Q2

REPORT INFORMATION
  Report Type: 
  Country: None (occurrence: None)
  Receive Date: 20060620
  Receipt Date: 20050630
  Transmission Date: 20061013
  Serious: Yes (Other)
  Sender: FDA-Public Use
  Company Number: M-05-225

PATIENT
  Sex: Female

DRUGS (1)
  1. PACERONE [Suspect]
     Indication: ATRIAL FIBRILLATION
     Dosage: PO
     Route: 048
     Dates: start: 20020819, end: 20030224

REACTIONS (2)
  - OPTIC NEUROPATHY [None]
  - VISUAL DISTURBANCE [None]
